FAERS Safety Report 18338005 (Version 1)
Quarter: 2020Q4

REPORT INFORMATION
  Report Type: Spontaneous
  Country: US (occurrence: US)
  Receive Date: 20201001
  Receipt Date: 20201001
  Transmission Date: 20210113
  Serious: No
  Sender: FDA-Public Use
  Company Number: None

PATIENT
  Age: 12 Year
  Sex: Male

DRUGS (1)
  1. AGALSIDASE BETA [Suspect]
     Active Substance: AGALSIDASE BETA
     Dates: start: 20200904, end: 20200904

REACTIONS (3)
  - Pain [None]
  - Crying [None]
  - Chills [None]

NARRATIVE: CASE EVENT DATE: 20200904
